FAERS Safety Report 4885988-7 (Version None)
Quarter: 2006Q1

REPORT INFORMATION
  Report Type: 
  Country: None (occurrence: None)
  Receive Date: 20060118
  Receipt Date: 20060118
  Transmission Date: 20060701
  Serious: Yes (Disabling)
  Sender: FDA-Public Use
  Company Number: None

PATIENT
  Age: 5 Month
  Sex: Male
  Weight: 3.8 kg

DRUGS (1)
  1. CORTICOTROPIN [Suspect]
     Indication: INFANTILE SPASMS
     Dosage: 50 UNITS DAILY IM
     Route: 030
     Dates: start: 20051217, end: 20060111

REACTIONS (2)
  - HYPERTENSION [None]
  - HYPERTROPHIC CARDIOMYOPATHY [None]
